FAERS Safety Report 12975822 (Version 1)
Quarter: 2016Q4

REPORT INFORMATION
  Report Type: Spontaneous
  Country: GB (occurrence: GB)
  Receive Date: 20161125
  Receipt Date: 20161125
  Transmission Date: 20170207
  Serious: Yes (Hospitalization, Disabling, Other)
  Sender: FDA-Public Use
  Company Number: GB-ABBVIE-16P-167-1728205-00

PATIENT
  Age: 55 Year
  Sex: Male

DRUGS (13)
  1. GABAPENTIN. [Concomitant]
     Active Substance: GABAPENTIN
     Indication: PRODUCT USED FOR UNKNOWN INDICATION
     Dosage: PLUS EXTRA DOSE AT NIGHT
  2. LIDOCAINE. [Suspect]
     Active Substance: LIDOCAINE
     Indication: SEDATION
     Route: 051
     Dates: start: 20140904, end: 20140904
  3. MIDAZOLAM [Suspect]
     Active Substance: MIDAZOLAM\MIDAZOLAM HYDROCHLORIDE
     Indication: SEDATION
     Route: 051
     Dates: start: 20140904, end: 20140904
  4. TRIAMCINOLONE [Suspect]
     Active Substance: TRIAMCINOLONE
     Indication: SEDATION
     Route: 051
     Dates: start: 20140904, end: 20140904
  5. CLONAZEPAM. [Concomitant]
     Active Substance: CLONAZEPAM
     Indication: PRODUCT USED FOR UNKNOWN INDICATION
  6. LEVOBUPIVACAINE [Suspect]
     Active Substance: LEVOBUPIVACAINE
     Indication: SEDATION
     Route: 051
     Dates: start: 20140904, end: 20140904
  7. RANITIDINE. [Concomitant]
     Active Substance: RANITIDINE
     Indication: PRODUCT USED FOR UNKNOWN INDICATION
     Dosage: 1-2 ONCE DAILY
  8. TRAMADOL. [Concomitant]
     Active Substance: TRAMADOL
     Indication: PRODUCT USED FOR UNKNOWN INDICATION
     Dosage: ONE OR TWO 4 TIMES DAILY - AS REQUIRED
  9. EPILIM [Concomitant]
     Active Substance: VALPROATE SODIUM
     Indication: PRODUCT USED FOR UNKNOWN INDICATION
  10. GLUCOSAMINE SULPHATE [Concomitant]
     Active Substance: GLUCOSAMINE
     Indication: PRODUCT USED FOR UNKNOWN INDICATION
  11. NORMAL SALINE [Suspect]
     Active Substance: SODIUM CHLORIDE
     Indication: SEDATION
     Route: 051
     Dates: start: 20140904, end: 20140904
  12. MORPHINE SULPHATE [Concomitant]
     Active Substance: MORPHINE SULFATE
     Indication: BREAKTHROUGH PAIN
     Dosage: 10MG/5ML
  13. FENTANYL. [Suspect]
     Active Substance: FENTANYL
     Indication: SEDATION
     Route: 051
     Dates: start: 20140904, end: 20140904

REACTIONS (40)
  - Loss of consciousness [Unknown]
  - Muscle twitching [Unknown]
  - Decreased appetite [Unknown]
  - Neck pain [Unknown]
  - Dysgeusia [Not Recovered/Not Resolved]
  - Speech disorder [Unknown]
  - Photophobia [Not Recovered/Not Resolved]
  - Facial paralysis [Unknown]
  - Ageusia [Unknown]
  - Dysgraphia [Unknown]
  - Syncope [Unknown]
  - Dissociative amnesia [Not Recovered/Not Resolved]
  - Erythema [Unknown]
  - Headache [Unknown]
  - Nightmare [Unknown]
  - Hypoaesthesia oral [Unknown]
  - Nausea [Not Recovered/Not Resolved]
  - Ocular hyperaemia [Unknown]
  - Eye pain [Unknown]
  - Hemiparesis [Unknown]
  - Dissociative amnesia [Unknown]
  - Pain [Unknown]
  - Skin warm [Unknown]
  - Hallucination [Unknown]
  - Musculoskeletal stiffness [Unknown]
  - Discomfort [Unknown]
  - Photosensitivity reaction [Not Recovered/Not Resolved]
  - Unresponsive to stimuli [Unknown]
  - Hypogeusia [Unknown]
  - Feeling hot [Unknown]
  - Ambidexterity [Unknown]
  - Rash [Unknown]
  - Rash erythematous [Unknown]
  - Dysgeusia [Unknown]
  - Mydriasis [Unknown]
  - Muscular weakness [Unknown]
  - Circulatory collapse [Unknown]
  - Muscle spasms [Unknown]
  - Depressed level of consciousness [Unknown]
  - Illusion [Unknown]

NARRATIVE: CASE EVENT DATE: 20140905
